FAERS Safety Report 20446837 (Version 1)
Quarter: 2022Q1

REPORT INFORMATION
  Report Type: Spontaneous
  Country: US (occurrence: US)
  Receive Date: 20220208
  Receipt Date: 20220208
  Transmission Date: 20220423
  Serious: No
  Sender: FDA-Public Use
  Company Number: US-ORGANON-O2202USA000269

PATIENT
  Sex: Female

DRUGS (3)
  1. GANIRELIX ACETATE [Suspect]
     Active Substance: GANIRELIX ACETATE
     Indication: Oocyte harvest
     Dosage: 250 MCG/0.5 ML; INJECT 250 MCG UNDER THE SKIN (SUBCUTANEOUS INJECTION) EVERYDAY
     Route: 058
     Dates: start: 20220126
  2. MENOPUR [Concomitant]
     Active Substance: FOLLITROPIN\LUTEINIZING HORMONE
     Dosage: UNK
  3. NOVAREL [Concomitant]
     Active Substance: CHORIOGONADOTROPIN ALFA
     Dosage: UNK

REACTIONS (2)
  - Pelvic discomfort [Unknown]
  - Pelvic pain [Unknown]
